FAERS Safety Report 11358506 (Version 1)
Quarter: 2015Q3

REPORT INFORMATION
  Report Type: Spontaneous
  Country: US (occurrence: US)
  Receive Date: 20150803
  Receipt Date: 20150803
  Transmission Date: 20151125
  Serious: Yes (Hospitalization, Disabling)
  Sender: FDA-Public Use
  Company Number: US-ELI_LILLY_AND_COMPANY-US200911005486

PATIENT
  Age: 59 Year
  Sex: Male
  Weight: 111 kg

DRUGS (18)
  1. ZYPREXA ZYDIS [Suspect]
     Active Substance: OLANZAPINE
     Indication: ANXIETY
     Dosage: 10 MG, AS NEEDED
     Dates: start: 2004
  2. ZYPREXA [Suspect]
     Active Substance: OLANZAPINE
     Dosage: 5 MG, EACH EVENING
     Dates: start: 20070105, end: 200702
  3. ZYPREXA [Suspect]
     Active Substance: OLANZAPINE
     Dosage: 7.5 MG, UNK
     Dates: start: 20070507, end: 200705
  4. ZYPREXA [Suspect]
     Active Substance: OLANZAPINE
     Dosage: 7.5 MG, DAILY (1/D)
     Dates: start: 20070831
  5. DEPAKOTE [Concomitant]
     Active Substance: DIVALPROEX SODIUM
     Dosage: 500 MG, UNK
  6. TRILEPTAL [Concomitant]
     Active Substance: OXCARBAZEPINE
     Dosage: 300 MG, UNK
  7. ZYPREXA [Suspect]
     Active Substance: OLANZAPINE
     Dosage: 10 MG, EACH EVENING
     Dates: start: 20050113, end: 20070105
  8. SEROQUEL [Concomitant]
     Active Substance: QUETIAPINE FUMARATE
  9. RISPERDAL [Concomitant]
     Active Substance: RISPERIDONE
     Dosage: 1 MG, DAILY (1/D)
     Dates: end: 200506
  10. ZYPREXA [Suspect]
     Active Substance: OLANZAPINE
     Dosage: 7.5 MG, UNK
     Dates: start: 20070611
  11. ZYPREXA [Suspect]
     Active Substance: OLANZAPINE
     Dosage: 5 MG, EACH EVENING
     Dates: start: 20070807, end: 20070821
  12. ZYPREXA [Suspect]
     Active Substance: OLANZAPINE
     Dosage: 2.5 MG, EACH EVENING
     Dates: start: 20070821, end: 20070911
  13. ZYPREXA [Suspect]
     Active Substance: OLANZAPINE
     Dosage: 20 MG, EACH EVENING
     Dates: start: 20070831
  14. RISPERDAL [Concomitant]
     Active Substance: RISPERIDONE
     Dosage: 2 MG, DAILY (1/D)
  15. ZYPREXA [Suspect]
     Active Substance: OLANZAPINE
     Dosage: 1 D/F, UNK
  16. ZYPREXA [Suspect]
     Active Substance: OLANZAPINE
     Dosage: 15 MG, EACH EVENING
     Dates: start: 20050609, end: 20050901
  17. ZYPREXA [Suspect]
     Active Substance: OLANZAPINE
     Dosage: 12.5 MG, EACH EVENING
     Dates: start: 20050902
  18. ZYPREXA [Suspect]
     Active Substance: OLANZAPINE
     Dosage: 10 MG, EACH EVENING
     Dates: start: 200705, end: 20070611

REACTIONS (12)
  - Blood cholesterol [Recovered/Resolved]
  - Hypertension [Unknown]
  - Weight increased [Recovered/Resolved]
  - Obesity [Unknown]
  - Metabolic disorder [Unknown]
  - Prescribed overdose [Recovered/Resolved]
  - Type 2 diabetes mellitus [Not Recovered/Not Resolved]
  - Blood triglycerides [Recovered/Resolved]
  - Off label use [Recovered/Resolved]
  - Tremor [Unknown]
  - Coronary artery disease [Unknown]
  - Hyperlipidaemia [Recovered/Resolved]

NARRATIVE: CASE EVENT DATE: 2006
